FAERS Safety Report 10265889 (Version 1)
Quarter: 2014Q2

REPORT INFORMATION
  Report Type: Report from Study
  Country: US (occurrence: US)
  Receive Date: 20140627
  Receipt Date: 20140627
  Transmission Date: 20141212
  Serious: Yes (Other)
  Sender: FDA-Public Use
  Company Number: US-BAXTER-2014BAX033974

PATIENT
  Sex: 0

DRUGS (6)
  1. CYCLOPHOSPHAMIDE FOR INJECTION, USP [Suspect]
     Indication: MANTLE CELL LYMPHOMA
     Dosage: ON DAYS 1 THROUGH 3 (FOR A TOTAL OF 6 DOSES)
     Route: 042
  2. RITUXIMAB [Suspect]
     Indication: MANTLE CELL LYMPHOMA
     Dosage: DAY 1
     Route: 042
  3. BORTEZOMIB [Suspect]
     Indication: MANTLE CELL LYMPHOMA
     Dosage: ON DAY 1 AND 4
     Route: 042
  4. DOXORUBICIN [Suspect]
     Indication: MANTLE CELL LYMPHOMA
     Dosage: CONTINUOUS INFUSION ON ON DAYS 1 AND 2
     Route: 042
  5. VINCRISTINE [Suspect]
     Indication: MANTLE CELL LYMPHOMA
     Dosage: DAY 3
     Route: 042
  6. DEXAMETHASONE [Suspect]
     Indication: MANTLE CELL LYMPHOMA
     Dosage: ON DAYS 1 THROUGH 4
     Route: 048

REACTIONS (1)
  - Disease progression [Unknown]
